FAERS Safety Report 4864939-5 (Version None)
Quarter: 2005Q4

REPORT INFORMATION
  Report Type: 
  Country: None (occurrence: None)
  Receive Date: 20051201
  Receipt Date: 20050717
  Transmission Date: 20060501
  Serious: No
  Sender: FDA-Public Use
  Company Number: 2005PV000439

PATIENT
  Age: 61 Year
  Sex: Female
  Weight: 97.0698 kg

DRUGS (13)
  1. BYETTA [Suspect]
     Indication: DIABETES MELLITUS NON-INSULIN-DEPENDENT
     Dosage: SEE IMAGE
     Route: 058
     Dates: start: 20050716, end: 20050815
  2. BYETTA [Suspect]
     Indication: DIABETES MELLITUS NON-INSULIN-DEPENDENT
     Dosage: SEE IMAGE
     Route: 058
     Dates: start: 20050816
  3. METFORMIN HCL [Concomitant]
  4. TOPROL-XL [Concomitant]
  5. AMARYL [Concomitant]
  6. ALTACE [Concomitant]
  7. ZOLOFT [Concomitant]
  8. LASIX [Concomitant]
  9. IMDUR [Concomitant]
  10. CENTRUM [Concomitant]
  11. ECOTRIN [Concomitant]
  12. LANTUS [Concomitant]
  13. LIPITOR [Concomitant]

REACTIONS (8)
  - ABDOMINAL PAIN UPPER [None]
  - DECREASED APPETITE [None]
  - DIZZINESS [None]
  - FEELING ABNORMAL [None]
  - FEELING JITTERY [None]
  - HEADACHE [None]
  - NAUSEA [None]
  - WEIGHT DECREASED [None]
